FAERS Safety Report 6532624-X (Version None)
Quarter: 2010Q1

REPORT INFORMATION
  Report Type: 
  Country: None (occurrence: None)
  Receive Date: 20100111
  Receipt Date: 20091002
  Transmission Date: 20100710
  Serious: Yes (Hospitalization, Other)
  Sender: FDA-Public Use
  Company Number: IE-CELGENEUS-229-20484-09121833

PATIENT
  Sex: Male
  Weight: 2.73 kg

DRUGS (3)
  1. INNOHEP [Suspect]
     Route: 064
     Dates: start: 20051129, end: 20060221
  2. PARACETAMOL [Concomitant]
     Route: 064
     Dates: start: 20051129, end: 20051202
  3. DEXAMETHASONE [Concomitant]
     Route: 064
     Dates: start: 20060221

REACTIONS (2)
  - DRUG EXPOSURE DURING PREGNANCY [None]
  - PREMATURE BABY [None]
